FAERS Safety Report 25985051 (Version 1)
Quarter: 2025Q4

REPORT INFORMATION
  Report Type: Report from Study
  Country: EU (occurrence: EU)
  Receive Date: 20251031
  Receipt Date: 20251031
  Transmission Date: 20260118
  Serious: Yes (Hospitalization)
  Sender: ABBVIE
  Company Number: EU-ABBVIE-6519268

PATIENT
  Age: 73 Year
  Sex: Female

DRUGS (16)
  1. FOSCARBIDOPA\FOSLEVODOPA [Suspect]
     Active Substance: FOSCARBIDOPA\FOSLEVODOPA
     Indication: Parkinson^s disease
     Dosage: LAST ADMIN DATE: 2025
     Route: 058
     Dates: start: 20250916
  2. FOSCARBIDOPA\FOSLEVODOPA [Suspect]
     Active Substance: FOSCARBIDOPA\FOSLEVODOPA
     Dosage: SLOW 0.18 ML/H, BASE 0.22 ML/H AND HIGH 0.24 ML/H. ED 0.15 ML.
     Route: 058
     Dates: start: 202510
  3. CEPHALEXIN [Concomitant]
     Active Substance: CEPHALEXIN
     Indication: Product used for unknown indication
     Dosage: 500 MG
     Route: 048
     Dates: start: 20251020
  4. PRAMIPEXOLE [Concomitant]
     Active Substance: PRAMIPEXOLE
     Indication: Parkinson^s disease
     Dosage: DAILY 1 TABLET
  5. FUROSEMIDE [Concomitant]
     Active Substance: FUROSEMIDE
     Indication: Product used for unknown indication
     Dosage: 1 TABLET IN THE MORNING.
  6. ESCITALOPRAM [Concomitant]
     Active Substance: ESCITALOPRAM OXALATE
     Indication: Depression
     Dosage: DAILY
  7. SITAGLIPTIN [Concomitant]
     Active Substance: SITAGLIPTIN
     Indication: Product used for unknown indication
     Dosage: 1 TABLET TWICE DAILY
  8. Zolt [Concomitant]
     Indication: Product used for unknown indication
     Dosage: 1 CAPSULE DAILY
  9. LOSARTAN [Concomitant]
     Active Substance: LOSARTAN
     Indication: Hypertension
  10. BISOPROLOL [Concomitant]
     Active Substance: BISOPROLOL
     Indication: Product used for unknown indication
     Dosage: 2,5 MG, 1 TABLET
     Dates: start: 2024
  11. MELATONIN [Concomitant]
     Active Substance: MELATONIN
     Indication: Sleep disorder
     Dosage: 2X3 MG IN THE EVENINGS.
  12. NORFLEX [Concomitant]
     Active Substance: ORPHENADRINE CITRATE
     Indication: Product used for unknown indication
     Dosage: 1 TABLET IN THE EVENING.
  13. ATORVASTATIN [Concomitant]
     Active Substance: ATORVASTATIN
     Indication: Hypercholesterolaemia
  14. GABAPENTIN [Concomitant]
     Active Substance: GABAPENTIN
     Indication: Blood cholesterol
     Dosage: 1 CAPSULE IN THE EVENING.
  15. Panadol forte [Concomitant]
     Indication: Analgesic therapy
     Dosage: 1 TABLET IF NEEDED.
  16. ZOPICLONE [Concomitant]
     Active Substance: ZOPICLONE
     Indication: Analgesic therapy
     Dosage: OCCASIONALLY HALF A TABLET.

REACTIONS (12)
  - Catheter site inflammation [Recovering/Resolving]
  - Drug ineffective [Recovered/Resolved]
  - Malabsorption [Unknown]
  - Infusion site erythema [Recovered/Resolved]
  - Fall [Recovered/Resolved]
  - Drug ineffective [Recovered/Resolved]
  - Contusion [Recovered/Resolved]
  - Infusion site irritation [Recovered/Resolved]
  - Infusion site nodule [Not Recovered/Not Resolved]
  - On and off phenomenon [Recovered/Resolved]
  - Mobility decreased [Recovered/Resolved]
  - Infusion site erythema [Not Recovered/Not Resolved]

NARRATIVE: CASE EVENT DATE: 20250101
